FAERS Safety Report 8771259 (Version 2)
Quarter: 2012Q4

REPORT INFORMATION
  Report Type: 
  Country: US (occurrence: US)
  Receive Date: 20120905
  Receipt Date: 20120917
  Transmission Date: 20130627
  Serious: Yes (Hospitalization)
  Sender: FDA-Public Use
  Company Number: US-BAXTER-2012BAX015849

PATIENT
  Age: 58 Year
  Sex: Female

DRUGS (2)
  1. DIANEAL LOW CALCIUM (ULTRABAG) [Suspect]
     Indication: PERITONEAL DIALYSIS
     Route: 033
  2. BACLOFEN [Suspect]
     Indication: BACK MUSCLE SPASMS
     Route: 065

REACTIONS (2)
  - Urinary tract infection [Recovered/Resolved]
  - Feeling abnormal [Recovered/Resolved]
